FAERS Safety Report 5151149-X (Version None)
Quarter: 2006Q4

REPORT INFORMATION
  Report Type: 
  Country: None (occurrence: None)
  Receive Date: 20061115
  Receipt Date: 20061108
  Transmission Date: 20070319
  Serious: Yes (Hospitalization)
  Sender: FDA-Public Use
  Company Number: 2006CG01819

PATIENT
  Age: 28 Year
  Sex: Female

DRUGS (1)
  1. ZOMIG [Suspect]
     Indication: HEADACHE
     Dosage: 15 TABLETS PER MONTH
     Route: 048
     Dates: end: 20060509

REACTIONS (2)
  - DRUG DEPENDENCE [None]
  - HEADACHE [None]
